FAERS Safety Report 15546227 (Version 1)
Quarter: 2018Q4

REPORT INFORMATION
  Report Type: Spontaneous
  Country: US (occurrence: US)
  Receive Date: 20181023
  Receipt Date: 20181023
  Transmission Date: 20190205
  Serious: Yes (Disabling)
  Sender: FDA-Public Use
  Company Number: None

PATIENT
  Age: 56 Year
  Sex: Female
  Weight: 54.45 kg

DRUGS (9)
  1. PROLIA [Suspect]
     Active Substance: DENOSUMAB
     Indication: OSTEOPOROSIS
     Dosage: ?          QUANTITY:1 INJECTION(S);OTHER FREQUENCY:EVERY 6 MONTHS;?
     Route: 030
     Dates: start: 20170818, end: 20180219
  2. PROTONIX [Concomitant]
     Active Substance: PANTOPRAZOLE SODIUM
  3. PERCOCET [Concomitant]
     Active Substance: ACETAMINOPHEN\OXYCODONE HYDROCHLORIDE
  4. LIPITOR [Concomitant]
     Active Substance: ATORVASTATIN CALCIUM
  5. CALCIUM [Concomitant]
     Active Substance: CALCIUM
  6. RESTORIL [Concomitant]
     Active Substance: TEMAZEPAM
  7. MOBIC [Concomitant]
     Active Substance: MELOXICAM
  8. VITAMIN D [Concomitant]
     Active Substance: CHOLECALCIFEROL
  9. FENTANYL. [Concomitant]
     Active Substance: FENTANYL

REACTIONS (20)
  - Balance disorder [None]
  - Urinary tract infection [None]
  - Pyrexia [None]
  - Pain in extremity [None]
  - Hypoacusis [None]
  - Chills [None]
  - Back pain [None]
  - Upper-airway cough syndrome [None]
  - Candida infection [None]
  - Myalgia [None]
  - Weight decreased [None]
  - Muscle spasms [None]
  - Fatigue [None]
  - Oedema peripheral [None]
  - Arthralgia [None]
  - Flatulence [None]
  - Sleep disorder [None]
  - Night sweats [None]
  - Erythema [None]
  - Blister [None]

NARRATIVE: CASE EVENT DATE: 20171124
